FAERS Safety Report 6620492-7 (Version None)
Quarter: 2010Q1

REPORT INFORMATION
  Report Type: 
  Country: None (occurrence: None)
  Receive Date: 20100309
  Receipt Date: 20100226
  Transmission Date: 20100710
  Serious: Yes (Other)
  Sender: FDA-Public Use
  Company Number: GB-ABBOTT-09P-167-0606739-00

PATIENT
  Sex: Female
  Weight: 74 kg

DRUGS (13)
  1. NORVIR [Suspect]
     Indication: HIV INFECTION
     Route: 048
     Dates: start: 20060905, end: 20081022
  2. NORVIR [Suspect]
     Route: 048
     Dates: start: 20081023
  3. PREZISTA [Suspect]
     Indication: HIV INFECTION
     Route: 048
     Dates: start: 20081023
  4. ETRAVIRINE [Suspect]
     Indication: HIV INFECTION
     Route: 048
     Dates: start: 20081023
  5. RALTEGRAVIR [Suspect]
     Indication: HIV INFECTION
     Route: 048
     Dates: start: 20081023
  6. APTIVUS [Suspect]
     Indication: HIV INFECTION
  7. TRUVADA [Suspect]
     Indication: HIV INFECTION
     Dosage: 245
     Route: 048
     Dates: start: 20060905, end: 20081023
  8. INSULIN [Concomitant]
     Indication: GESTATIONAL DIABETES
  9. ZIDOVUDINE [Concomitant]
     Indication: DRUG USE FOR UNKNOWN INDICATION
  10. NOVORAPID [Concomitant]
     Indication: GESTATIONAL DIABETES
     Dates: end: 20091022
  11. DARUNAVIR [Concomitant]
     Indication: DRUG USE FOR UNKNOWN INDICATION
  12. PREDNISOLONE [Concomitant]
     Indication: DRUG USE FOR UNKNOWN INDICATION
  13. INTELENCE [Concomitant]
     Indication: DRUG USE FOR UNKNOWN INDICATION

REACTIONS (6)
  - ALANINE AMINOTRANSFERASE ABNORMAL [None]
  - ASPARTATE AMINOTRANSFERASE ABNORMAL [None]
  - DRUG EXPOSURE DURING PREGNANCY [None]
  - HEPATITIS [None]
  - PREGNANCY [None]
  - PREMATURE LABOUR [None]
